FAERS Safety Report 8302558-9 (Version None)
Quarter: 2012Q2

REPORT INFORMATION
  Report Type: 
  Country: None (occurrence: None)
  Receive Date: 20120420
  Receipt Date: 20120412
  Transmission Date: 20120825
  Serious: Yes (Death)
  Sender: FDA-Public Use
  Company Number: KR-BAXTER-2012BAX003153

PATIENT

DRUGS (8)
  1. COTRIM [Concomitant]
     Indication: PROPHYLAXIS
  2. CYCLOPHOSPHAMIDE [Suspect]
     Indication: BONE MARROW CONDITIONING REGIMEN
     Route: 042
  3. URSODIOL [Concomitant]
     Indication: PROPHYLAXIS
  4. ACYCLOVIR [Concomitant]
     Indication: PROPHYLAXIS
     Route: 048
  5. BUSULFEX [Suspect]
     Indication: BONE MARROW CONDITIONING REGIMEN
     Route: 042
  6. CIPROFLOXACIN [Concomitant]
     Indication: ANTIBIOTIC PROPHYLAXIS
     Route: 048
  7. METRONIDAZOLE [Concomitant]
     Indication: ANTIBIOTIC PROPHYLAXIS
     Route: 048
  8. FLUCONAZOLE [Concomitant]
     Indication: ANTIBIOTIC PROPHYLAXIS
     Route: 048

REACTIONS (1)
  - CEREBRAL HAEMORRHAGE [None]
